FAERS Safety Report 14941316 (Version 3)
Quarter: 2020Q1

REPORT INFORMATION
  Report Type: Spontaneous
  Country: ZA (occurrence: ZA)
  Receive Date: 20180526
  Receipt Date: 20200212
  Transmission Date: 20200409
  Serious: Yes (Other)
  Sender: FDA-Public Use
  Company Number: ZA-AMGEN-ZAFSP2018070915

PATIENT
  Age: 51 Year
  Sex: Male
  Weight: 83.1 kg

DRUGS (3)
  1. ENBREL [Suspect]
     Active Substance: ETANERCEPT
     Indication: PRODUCT USED FOR UNKNOWN INDICATION
     Dosage: 50 MILLIGRAM, UNK
     Route: 058
  2. ENBREL [Suspect]
     Active Substance: ETANERCEPT
     Dosage: UNK
     Route: 065
  3. ARCOXIA [Suspect]
     Active Substance: ETORICOXIB
     Indication: PRODUCT USED FOR UNKNOWN INDICATION
     Dosage: UNK
     Route: 065

REACTIONS (10)
  - Paraesthesia [Unknown]
  - Mobility decreased [Unknown]
  - Blood pressure increased [Unknown]
  - Middle insomnia [Unknown]
  - C-reactive protein increased [Unknown]
  - Neck pain [Unknown]
  - Inflammatory pain [Unknown]
  - Arthropathy [Unknown]
  - Therapeutic product effect incomplete [Unknown]
  - Chest expansion decreased [Recovering/Resolving]

NARRATIVE: CASE EVENT DATE: 201805
